FAERS Safety Report 8935619 (Version 2)
Quarter: 2012Q4

REPORT INFORMATION
  Report Type: 
  Country: BR (occurrence: BR)
  Receive Date: 20121130
  Receipt Date: 20121228
  Transmission Date: 20130627
  Serious: Yes (Other)
  Sender: FDA-Public Use
  Company Number: BR-PFIZER INC-2012300477

PATIENT
  Sex: Female

DRUGS (2)
  1. LYRICA [Suspect]
     Dosage: UNK
  2. CELEBRA [Suspect]
     Dosage: UNK

REACTIONS (4)
  - Hypertensive crisis [Unknown]
  - Hypertension [Unknown]
  - Dizziness [Unknown]
  - Malaise [Unknown]
